FAERS Safety Report 13145666 (Version 12)
Quarter: 2017Q3

REPORT INFORMATION
  Report Type: Spontaneous
  Country: US (occurrence: US)
  Receive Date: 20170124
  Receipt Date: 20170821
  Transmission Date: 20171127
  Serious: Yes (Hospitalization)
  Sender: FDA-Public Use
  Company Number: US-ACTELION-A-NJ2016-146884

PATIENT
  Age: 35 Year
  Sex: Female
  Weight: 62.13 kg

DRUGS (4)
  1. ADEMPAS [Concomitant]
     Active Substance: RIOCIGUAT
  2. REMODULIN [Suspect]
     Active Substance: TREPROSTINIL
     Indication: PRODUCT USED FOR UNKNOWN INDICATION
     Route: 058
  3. REMODULIN [Suspect]
     Active Substance: TREPROSTINIL
     Dosage: UNK
     Route: 042
  4. OPSUMIT [Suspect]
     Active Substance: MACITENTAN
     Indication: PULMONARY ARTERIAL HYPERTENSION
     Dosage: 10 MG, QD
     Route: 048
     Dates: start: 20161122

REACTIONS (12)
  - Diarrhoea [Unknown]
  - Incorrect dose administered [Unknown]
  - Fluid retention [Unknown]
  - Swelling [Unknown]
  - Nausea [Unknown]
  - Injection site pain [Unknown]
  - Injection site swelling [Unknown]
  - Disease complication [Unknown]
  - Abdominal distension [Unknown]
  - Fluid overload [Unknown]
  - Oedema peripheral [Unknown]
  - Condition aggravated [Unknown]
